FAERS Safety Report 8421909 (Version 3)
Quarter: 2013Q1

REPORT INFORMATION
  Report Type: Spontaneous
  Country: US (occurrence: None)
  Receive Date: 20120213
  Receipt Date: 20130221
  Transmission Date: 20140127
  Serious: Yes (Hospitalization)
  Sender: FDA-Public Use
  Company Number: ACO_29285_2012

PATIENT
  Age: 58 Year
  Sex: Female
  Weight: 86.2 kg

DRUGS (4)
  1. AMPYRA [Suspect]
     Dosage: 10 MG, BID, ORAL, 10 MG, QD, ORAL, 10 MG, BID, ORAL
     Route: 048
     Dates: start: 201101, end: 201112
  2. SENNA /00142201/ (SENNA ALEXANDRINA) [Concomitant]
  3. VITAMIN B12 [Concomitant]
  4. CRANBERRY /01512301/ (VACCINIUM MACROCARPON) [Concomitant]

REACTIONS (4)
  - MULTIPLE SCLEROSIS RELAPSE [None]
  - GAIT DISTURBANCE [None]
  - CYSTITIS [None]
  - URINARY TRACT INFECTION [None]
